FAERS Safety Report 9051311 (Version 1)
Quarter: 2013Q1

REPORT INFORMATION
  Report Type: Spontaneous
  Country: CH (occurrence: CH)
  Receive Date: 20130206
  Receipt Date: 20130206
  Transmission Date: 20140127
  Serious: Yes (Death)
  Sender: FDA-Public Use
  Company Number: CH-BAYER-2013-011575

PATIENT
  Sex: Female

DRUGS (1)
  1. BETAFERON [Suspect]
     Dosage: UNK UNK, QOD
     Dates: start: 1995

REACTIONS (1)
  - Peritoneal neoplasm [Fatal]
